FAERS Safety Report 17864467 (Version 1)
Quarter: 2020Q2

REPORT INFORMATION
  Report Type: Spontaneous
  Country: US (occurrence: US)
  Receive Date: 20200604
  Receipt Date: 20200604
  Transmission Date: 20200714
  Serious: Yes (Other)
  Sender: FDA-Public Use
  Company Number: None

PATIENT
  Age: 47 Year
  Sex: Female
  Weight: 81 kg

DRUGS (7)
  1. LIRAGLUTIDE [Suspect]
     Active Substance: LIRAGLUTIDE
     Indication: OBESITY
     Route: 058
     Dates: start: 20180816, end: 20200603
  2. AMITRIPTYLLINE [Concomitant]
     Active Substance: AMITRIPTYLINE
     Dates: start: 19990601, end: 20200604
  3. VENLAFAXINE [Concomitant]
     Active Substance: VENLAFAXINE HYDROCHLORIDE
     Dates: start: 20100101, end: 20191020
  4. DESVENLAFAXINE. [Concomitant]
     Active Substance: DESVENLAFAXINE
     Dates: start: 20200101, end: 20200604
  5. LAMOTRIGENE [Concomitant]
     Active Substance: LAMOTRIGINE
     Dates: start: 20161001, end: 20191031
  6. LIRAGLUTIDE [Suspect]
     Active Substance: LIRAGLUTIDE
     Indication: METABOLIC SYNDROME
     Route: 058
     Dates: start: 20180816, end: 20200603
  7. PHENTERMINE. [Suspect]
     Active Substance: PHENTERMINE
     Dates: start: 20180201, end: 20200603

REACTIONS (4)
  - Fatigue [None]
  - Hepatic steatosis [None]
  - Abdominal pain upper [None]
  - Scleroderma [None]

NARRATIVE: CASE EVENT DATE: 20190613
